FAERS Safety Report 14626233 (Version 1)
Quarter: 2018Q1

REPORT INFORMATION
  Report Type: Spontaneous
  Country: US (occurrence: US)
  Receive Date: 20180312
  Receipt Date: 20180312
  Transmission Date: 20180509
  Serious: Yes (Other)
  Sender: FDA-Public Use
  Company Number: US-PFIZER INC-2018097651

PATIENT
  Sex: Female

DRUGS (1)
  1. ADVIL LIQUI-GELS [Suspect]
     Active Substance: IBUPROFEN
     Dosage: UNK UNK, 1X/DAY (ONCE AND 2 WEEKS AGO (SATURDAY)/ONLY ONCE ON THAT DAY)
     Dates: start: 201802, end: 201802

REACTIONS (6)
  - Erythema [Recovering/Resolving]
  - Loss of consciousness [Recovering/Resolving]
  - Ocular hyperaemia [Recovering/Resolving]
  - Swollen tongue [Recovering/Resolving]
  - Hypersensitivity [Recovering/Resolving]
  - Pruritus [Recovering/Resolving]

NARRATIVE: CASE EVENT DATE: 201802
